FAERS Safety Report 4422038-0 (Version None)
Quarter: 2004Q3

REPORT INFORMATION
  Report Type: 
  Country: None (occurrence: None)
  Receive Date: 20040804
  Receipt Date: 20040720
  Transmission Date: 20050211
  Serious: Yes (Death, Hospitalization, Other)
  Sender: FDA-Public Use
  Company Number: 04-275-0768

PATIENT
  Age: 69 Year
  Sex: Male
  Weight: 79 kg

DRUGS (2)
  1. DAUNORUBUCIN INJ, UNKNOWN STRENGTH, BEN VENUE LABS [Suspect]
     Dosage: 255 MG OTHER
     Route: 050
     Dates: start: 20030604, end: 20030606
  2. REFER TO ATTACHMENT I (ELI LILLY # EWC030635297) [Concomitant]

REACTIONS (4)
  - LUNG INFILTRATION [None]
  - MYOCARDIAL ISCHAEMIA [None]
  - RESPIRATORY FAILURE [None]
  - SEPSIS [None]
